FAERS Safety Report 16705108 (Version 1)
Quarter: 2019Q3

REPORT INFORMATION
  Report Type: Spontaneous
  Country: US (occurrence: US)
  Receive Date: 20190815
  Receipt Date: 20190815
  Transmission Date: 20191004
  Serious: No
  Sender: FDA-Public Use
  Company Number: US-ASTRAZENECA-2019SF05077

PATIENT
  Age: 13 Year
  Sex: Female

DRUGS (1)
  1. FASENRA [Suspect]
     Active Substance: BENRALIZUMAB
     Indication: ASTHMA
     Dosage: 30 MG FIRST 3 DOSES WERE GIVEN EVERY 4 WEEKS AND NOW IS RECEIVING THE DOSES EVERY EIGHT WEEKS
     Route: 058
     Dates: start: 2018

REACTIONS (1)
  - Contusion [Not Recovered/Not Resolved]
